FAERS Safety Report 20830645 (Version 1)
Quarter: 2022Q2

REPORT INFORMATION
  Report Type: Spontaneous
  Country: US (occurrence: US)
  Receive Date: 20220514
  Receipt Date: 20220514
  Transmission Date: 20220720
  Serious: No
  Sender: FDA-Public Use
  Company Number: US-LUPIN PHARMACEUTICALS INC.-2022-06958

PATIENT
  Sex: Male

DRUGS (7)
  1. OXYCODONE AND ACETAMINOPHEN [Suspect]
     Active Substance: ACETAMINOPHEN\OXYCODONE HYDROCHLORIDE
     Indication: Pain
     Dosage: UNK
     Route: 065
  2. HYDROMORPHONE [Suspect]
     Active Substance: HYDROMORPHONE
     Indication: Pain
     Dosage: UNK
     Route: 065
  3. CODEINE [Suspect]
     Active Substance: CODEINE
     Indication: Pain
     Dosage: UNK
     Route: 065
  4. BUPRENORPHINE [Concomitant]
     Active Substance: BUPRENORPHINE
     Indication: Pain
     Dosage: 15 MCG/HOUR WEEKLY
     Route: 062
  5. BUPRENORPHINE [Concomitant]
     Active Substance: BUPRENORPHINE
     Dosage: 20 MCG/HOUR WEEKLY
     Route: 062
  6. ACETAMINOPHEN\HYDROCODONE [Concomitant]
     Active Substance: ACETAMINOPHEN\HYDROCODONE
     Indication: Pain
     Dosage: 5-325MG
     Route: 048
  7. ACETAMINOPHEN\HYDROCODONE [Concomitant]
     Active Substance: ACETAMINOPHEN\HYDROCODONE
     Dosage: REDUCED DOSE
     Route: 048

REACTIONS (2)
  - Rash erythematous [Recovered/Resolved]
  - Hypersensitivity [Unknown]
